FAERS Safety Report 19346205 (Version 2)
Quarter: 2021Q3

REPORT INFORMATION
  Report Type: Spontaneous
  Country: US (occurrence: US)
  Receive Date: 20210531
  Receipt Date: 20210805
  Transmission Date: 20211014
  Serious: No
  Sender: FDA-Public Use
  Company Number: US-ASTRAZENECA-2021A461230

PATIENT
  Age: 28473 Day
  Sex: Female
  Weight: 61.2 kg

DRUGS (3)
  1. MODERNA COVID 19 SHOT [Concomitant]
     Route: 065
     Dates: start: 20210429
  2. BYDUREON BCISE [Suspect]
     Active Substance: EXENATIDE
     Indication: DIABETES MELLITUS
     Route: 065
  3. BYDUREON [Concomitant]
     Active Substance: EXENATIDE
     Indication: DIABETES MELLITUS
     Route: 065
     Dates: end: 20210506

REACTIONS (6)
  - Product dose omission issue [Not Recovered/Not Resolved]
  - Fibromyalgia [Unknown]
  - Needle track marks [Unknown]
  - Drug delivery system issue [Unknown]
  - Neuralgia [Not Recovered/Not Resolved]
  - Incorrect dose administered by device [Unknown]

NARRATIVE: CASE EVENT DATE: 20210513
